FAERS Safety Report 6692187-5 (Version None)
Quarter: 2010Q2

REPORT INFORMATION
  Report Type: 
  Country: None (occurrence: None)
  Receive Date: 20100415
  Receipt Date: 20090717
  Transmission Date: 20101027
  Serious: No
  Sender: FDA-Public Use
  Company Number: 2009-00400

PATIENT
  Age: 66 Year
  Sex: Male
  Weight: 79.3795 kg

DRUGS (4)
  1. ZICAM COLD REMEDY GEL SWABS [Suspect]
     Dosage: ^ABOUT A WEEK^ - EARLY SPRING 2009
     Dates: start: 20090101, end: 20090101
  2. EFFEXOR [Concomitant]
  3. SYNTHROID [Concomitant]
  4. TRAZODONE HCL [Concomitant]

REACTIONS (1)
  - ANOSMIA [None]
